FAERS Safety Report 16244603 (Version 2)
Quarter: 2019Q2

REPORT INFORMATION
  Report Type: Report from Study
  Country: EG (occurrence: EG)
  Receive Date: 20190426
  Receipt Date: 20190430
  Transmission Date: 20190711
  Serious: Yes (Death, Hospitalization)
  Sender: FDA-Public Use
  Company Number: PHHY2019EG096443

PATIENT
  Age: 56 Year
  Sex: Female

DRUGS (1)
  1. GLIVEC [Suspect]
     Active Substance: IMATINIB MESYLATE
     Indication: CHRONIC MYELOID LEUKAEMIA
     Dosage: 400 MG/ DAY
     Route: 048

REACTIONS (4)
  - Blood glucose increased [Unknown]
  - Blood pressure increased [Recovering/Resolving]
  - Pain in extremity [Unknown]
  - Pyrexia [Fatal]

NARRATIVE: CASE EVENT DATE: 201811
